FAERS Safety Report 13090185 (Version 1)
Quarter: 2017Q1

REPORT INFORMATION
  Report Type: Not Available
  Country: FR (occurrence: FR)
  Receive Date: 20170105
  Receipt Date: 20170105
  Transmission Date: 20170428
  Serious: Yes (Other)
  Sender: FDA-Public Use
  Company Number: FR-ANIPHARMA-2017-FR-000001

PATIENT
  Age: 70 Year
  Sex: Female

DRUGS (9)
  1. FLUOXETINE HYDROCHLORIDE (NON-SPECIFIC) [Suspect]
     Active Substance: FLUOXETINE HYDROCHLORIDE
     Route: 065
  2. PERINDOPRIL ERBUMINE (NON-SPECIFIC) [Suspect]
     Active Substance: PERINDOPRIL ERBUMINE
     Route: 065
  3. TRAMADOL. [Suspect]
     Active Substance: TRAMADOL
  4. CLOPIDOGREL [Suspect]
     Active Substance: CLOPIDOGREL BISULFATE
  5. ATORVASTATIN [Suspect]
     Active Substance: ATORVASTATIN
  6. SITAGLIPTIN [Suspect]
     Active Substance: SITAGLIPTIN
  7. DILTIAZEM. [Suspect]
     Active Substance: DILTIAZEM
  8. ESOMEPRAZOLE [Suspect]
     Active Substance: ESOMEPRAZOLE
  9. METFORMIN [Concomitant]
     Active Substance: METFORMIN HYDROCHLORIDE

REACTIONS (2)
  - Pemphigoid [Unknown]
  - Eosinophilia [Unknown]
